FAERS Safety Report 11749066 (Version 1)
Quarter: 2015Q4

REPORT INFORMATION
  Report Type: Spontaneous
  Country: IT (occurrence: IT)
  Receive Date: 20151118
  Receipt Date: 20151118
  Transmission Date: 20160304
  Serious: Yes (Hospitalization)
  Sender: FDA-Public Use
  Company Number: IT-AUROBINDO-AUR-APL-2015-10226

PATIENT
  Age: 86 Year
  Sex: Female

DRUGS (15)
  1. OSSIGENO [Concomitant]
     Indication: PRODUCT USED FOR UNKNOWN INDICATION
     Dosage: UNK
     Route: 065
  2. MORPHINE SULPHATE [Concomitant]
     Active Substance: MORPHINE SULFATE
     Indication: PRODUCT USED FOR UNKNOWN INDICATION
     Dosage: 30 MG
     Route: 048
  3. NEBILOX [Interacting]
     Active Substance: NEBIVOLOL HYDROCHLORIDE
     Indication: PRODUCT USED FOR UNKNOWN INDICATION
     Dosage: 2.5 MG DAILY
     Route: 048
  4. ORAMORPH [Concomitant]
     Active Substance: MORPHINE SULFATE
     Indication: PRODUCT USED FOR UNKNOWN INDICATION
     Dosage: 10 MG
     Route: 048
  5. NOLITERAX [Concomitant]
     Dosage: 12.5 MG
     Route: 048
  6. FENTANYL. [Concomitant]
     Active Substance: FENTANYL
     Indication: PRODUCT USED FOR UNKNOWN INDICATION
     Route: 062
  7. REPAGLINIDE. [Suspect]
     Active Substance: REPAGLINIDE
     Indication: TYPE 2 DIABETES MELLITUS
     Route: 048
  8. CARDIOASPIRIN [Interacting]
     Active Substance: ASPIRIN
     Dosage: 100 MG DAILY
     Route: 048
  9. VASEXTEN D [Concomitant]
     Indication: PRODUCT USED FOR UNKNOWN INDICATION
     Dosage: 20 MG
     Route: 048
  10. CARDIOASPIRIN [Interacting]
     Active Substance: ASPIRIN
     Indication: PRODUCT USED FOR UNKNOWN INDICATION
     Dosage: 100 MG DAILY
     Route: 048
  11. NOLITERAX [Concomitant]
     Indication: PRODUCT USED FOR UNKNOWN INDICATION
     Dosage: 12.5 MG
     Route: 048
  12. TRIAZOLAM. [Concomitant]
     Active Substance: TRIAZOLAM
     Indication: PRODUCT USED FOR UNKNOWN INDICATION
     Route: 048
  13. ORAMORPH [Concomitant]
     Active Substance: MORPHINE SULFATE
     Dosage: 10 MG
     Route: 048
  14. BARNIDIPINE HYDROCHLORIDE [Concomitant]
     Active Substance: BARNIDIPINE HYDROCHLORIDE
     Indication: PRODUCT USED FOR UNKNOWN INDICATION
     Route: 048
  15. REPAGLINIDE. [Suspect]
     Active Substance: REPAGLINIDE
     Route: 048

REACTIONS (4)
  - Urinary tract infection [Recovering/Resolving]
  - Hypoglycaemia [Recovering/Resolving]
  - Lung disorder [Recovering/Resolving]
  - Drug interaction [Recovering/Resolving]

NARRATIVE: CASE EVENT DATE: 20120904
